FAERS Safety Report 5940924-7 (Version None)
Quarter: 2008Q4

REPORT INFORMATION
  Report Type: 
  Country: None (occurrence: None)
  Receive Date: 20081104
  Receipt Date: 20081028
  Transmission Date: 20090506
  Serious: Yes (Hospitalization)
  Sender: FDA-Public Use
  Company Number: US-GENENTECH-270592

PATIENT
  Sex: Male
  Weight: 92.5 kg

DRUGS (6)
  1. RITUXAN [Suspect]
     Indication: MANTLE CELL LYMPHOMA
     Dosage: 791 MG, UNK
     Dates: start: 20080913, end: 20080913
  2. BEVACIZUMAB [Suspect]
     Indication: MANTLE CELL LYMPHOMA
     Dosage: 1425 MG, UNK
     Route: 042
     Dates: start: 20080911, end: 20080911
  3. CYCLOPHOSPHAMIDE [Concomitant]
     Indication: MANTLE CELL LYMPHOMA
     Dosage: UNK
     Dates: start: 20080913, end: 20080916
  4. DOXORUBICIN HCL [Concomitant]
     Indication: MANTLE CELL LYMPHOMA
     Dosage: UNK
     Dates: start: 20080913, end: 20080916
  5. VINCRISTINE [Concomitant]
     Indication: MANTLE CELL LYMPHOMA
     Dosage: UNK
     Dates: start: 20080913, end: 20080916
  6. PREDNISONE TAB [Concomitant]
     Indication: MANTLE CELL LYMPHOMA
     Dosage: UNK
     Dates: start: 20080913, end: 20080916

REACTIONS (1)
  - TUMOUR LYSIS SYNDROME [None]
